FAERS Safety Report 7417453-7 (Version None)
Quarter: 2011Q2

REPORT INFORMATION
  Report Type: 
  Country: None (occurrence: None)
  Receive Date: 20110408
  Receipt Date: 20110401
  Transmission Date: 20111010
  Serious: Yes (Death, Hospitalization)
  Sender: FDA-Public Use
  Company Number: 115065

PATIENT
  Age: 14 Month
  Sex: Female
  Weight: 7.7111 kg

DRUGS (1)
  1. METHOTREXATE [Suspect]
     Indication: IMMUNOSUPPRESSION
     Dosage: 15MG/M2 Q2W
     Dates: start: 20100820, end: 20110121

REACTIONS (12)
  - USE OF ACCESSORY RESPIRATORY MUSCLES [None]
  - ALANINE AMINOTRANSFERASE INCREASED [None]
  - CYANOSIS [None]
  - RESPIRATORY ARREST [None]
  - PNEUMONIA [None]
  - CARDIOMEGALY [None]
  - INFLUENZA [None]
  - PULMONARY OEDEMA [None]
  - INFLUENZA A VIRUS TEST POSITIVE [None]
  - ATELECTASIS [None]
  - TACHYCARDIA [None]
  - IMMUNOSUPPRESSION [None]
